FAERS Safety Report 9631506 (Version 1)
Quarter: 2013Q4

REPORT INFORMATION
  Report Type: Spontaneous
  Country: SG (occurrence: SG)
  Receive Date: 20131018
  Receipt Date: 20131018
  Transmission Date: 20140711
  Serious: Yes (Other)
  Sender: FDA-Public Use
  Company Number: SG-PFIZER INC-2013296540

PATIENT
  Age: 3 Year
  Sex: Female

DRUGS (1)
  1. ATROPINE SULFATE [Suspect]
     Route: 031

REACTIONS (2)
  - Face oedema [Unknown]
  - Periorbital oedema [Unknown]
